FAERS Safety Report 14839180 (Version 4)
Quarter: 2018Q2

REPORT INFORMATION
  Report Type: Spontaneous
  Country: JP (occurrence: JP)
  Receive Date: 20180502
  Receipt Date: 20180620
  Transmission Date: 20180711
  Serious: Yes (Death, Hospitalization)
  Sender: FDA-Public Use
  Company Number: JP-CELGENEUS-JPN-20180409816

PATIENT
  Age: 64 Year
  Sex: Male
  Weight: 66 kg

DRUGS (9)
  1. FENTANYL CITRATE. [Concomitant]
     Active Substance: FENTANYL CITRATE
     Indication: PRODUCT USED FOR UNKNOWN INDICATION
     Dosage: 2400 MICROGRAM
     Route: 065
     Dates: start: 20180404, end: 20180415
  2. OXYCODONE HYDROCHLORIDE. [Concomitant]
     Active Substance: OXYCODONE HYDROCHLORIDE
     Indication: PRODUCT USED FOR UNKNOWN INDICATION
     Route: 065
     Dates: start: 20180404
  3. ABRAXANE [Suspect]
     Active Substance: PACLITAXEL
     Dosage: 135 MILLIGRAM
     Route: 041
     Dates: start: 20180326, end: 20180402
  4. PALONOSETRON HYDROCHLORIDE. [Concomitant]
     Active Substance: PALONOSETRON HYDROCHLORIDE
     Indication: PRODUCT USED FOR UNKNOWN INDICATION
     Dosage: .75 MILLIGRAM
     Route: 041
     Dates: start: 20180319, end: 20180402
  5. ABRAXANE [Suspect]
     Active Substance: PACLITAXEL
     Indication: PANCREATIC CARCINOMA METASTATIC
     Dosage: 180 MILLIGRAM
     Route: 041
     Dates: start: 20180319
  6. GEMCITABINE HYDROCHLORIDE. [Suspect]
     Active Substance: GEMCITABINE HYDROCHLORIDE
     Dosage: 1100 MILLIGRAM
     Route: 041
     Dates: start: 20180326, end: 20180402
  7. GEMCITABINE HYDROCHLORIDE. [Suspect]
     Active Substance: GEMCITABINE HYDROCHLORIDE
     Indication: PANCREATIC CARCINOMA METASTATIC
     Dosage: 1400 MILLIGRAM
     Route: 041
     Dates: start: 20180319
  8. DEXAMETHASONE SODIUM PHOSPHATE. [Concomitant]
     Active Substance: DEXAMETHASONE SODIUM PHOSPHATE
     Indication: PRODUCT USED FOR UNKNOWN INDICATION
     Dosage: 6.6 MILLIGRAM
     Route: 041
     Dates: start: 20180319, end: 20180402
  9. APREPITANT. [Concomitant]
     Active Substance: APREPITANT
     Indication: PRODUCT USED FOR UNKNOWN INDICATION
     Dosage: 125 MILLIGRAM
     Route: 048
     Dates: start: 20180319, end: 20180406

REACTIONS (6)
  - Tumour lysis syndrome [Fatal]
  - Intra-abdominal haemorrhage [Fatal]
  - Platelet count decreased [Unknown]
  - Hepatic failure [Fatal]
  - Diarrhoea [Recovering/Resolving]
  - Pancreatic carcinoma metastatic [Fatal]

NARRATIVE: CASE EVENT DATE: 20180326
